FAERS Safety Report 6947895 (Version 2)
Quarter: 2012Q4

REPORT INFORMATION
  Report Type: Spontaneous
  Country: ES (occurrence: None)
  Receive Date: 20090311
  Receipt Date: 20121127
  Transmission Date: 20130627
  Serious: Yes (Death, Hospitalization)
  Sender: FDA-Public Use
  Company Number: 2009EU000945

PATIENT
  Age: 20 Month
  Sex: Male

DRUGS (2)
  1. PROGRAF [Suspect]
     Indication: LIVER TRANSPLANT
     Dosage: 6 MG, UNKNOWN/D, ORAL
     Route: 048
     Dates: start: 20081126
  2. METHYLPREDNISOLON [Suspect]
     Route: 042
     Dates: start: 20081127

REACTIONS (13)
  - Adult T-cell lymphoma/leukaemia [None]
  - Respiratory failure [None]
  - Tracheal disorder [None]
  - Bacterial disease carrier [None]
  - Graft versus host disease [None]
  - Tachycardia [None]
  - Anaemia [None]
  - Cardiac arrest [None]
  - Thrombocytopenia [None]
  - Computerised tomogram abnormal [None]
  - Klebsiella infection [None]
  - Pseudomonas infection [None]
  - Leukopenia [None]
